FAERS Safety Report 17847447 (Version 5)
Quarter: 2020Q4

REPORT INFORMATION
  Report Type: Report from Study
  Country: CL (occurrence: CL)
  Receive Date: 20200601
  Receipt Date: 20201023
  Transmission Date: 20210113
  Serious: Yes (Other)
  Sender: FDA-Public Use
  Company Number: NVSC2020CL150348

PATIENT
  Age: 30 Year
  Sex: Female

DRUGS (1)
  1. KISQALI [Suspect]
     Active Substance: RIBOCICLIB
     Indication: BREAST CANCER
     Dosage: 600 MG QD TABLET (FOR 21 DAYS AND 7 DAYS OF REST)
     Route: 048
     Dates: start: 20200304

REACTIONS (18)
  - Sinus arrhythmia [Unknown]
  - Blood lactate dehydrogenase increased [Unknown]
  - Blood cholesterol increased [Unknown]
  - Blood follicle stimulating hormone decreased [Unknown]
  - Oestradiol decreased [Unknown]
  - Laboratory test abnormal [Unknown]
  - Full blood count abnormal [Unknown]
  - Mean cell volume increased [Unknown]
  - Macrocytosis [Unknown]
  - Neutrophil count decreased [Unknown]
  - Nodule [Recovered/Resolved]
  - Liver function test abnormal [Unknown]
  - Blood alkaline phosphatase increased [Unknown]
  - Atrioventricular conduction time shortened [Unknown]
  - Red cell distribution width increased [Unknown]
  - Red blood cell count decreased [Unknown]
  - Red blood cell sedimentation rate increased [Unknown]
  - White blood cell count decreased [Unknown]

NARRATIVE: CASE EVENT DATE: 20200525
